FAERS Safety Report 21785054 (Version 1)
Quarter: 2022Q4

REPORT INFORMATION
  Report Type: Spontaneous
  Country: GB (occurrence: GB)
  Receive Date: 20221227
  Receipt Date: 20221227
  Transmission Date: 20230113
  Serious: Yes (Hospitalization, Other)
  Sender: FDA-Public Use
  Company Number: None

PATIENT
  Age: 85 Year
  Sex: Male
  Weight: 103 kg

DRUGS (12)
  1. METHOTREXATE SODIUM [Suspect]
     Active Substance: METHOTREXATE SODIUM
     Dosage: 12.5MG (FIVE TABLETS) TO BE TAKEN WEEKLY FOR 3 ...
     Dates: start: 20220516
  2. MODERNA COVID-19 VACCINE [Suspect]
     Active Substance: ELASOMERAN
     Indication: COVID-19 immunisation
     Dates: start: 20220822, end: 20220822
  3. CALCIUM\CHOLECALCIFEROL [Concomitant]
     Active Substance: CALCIUM\CHOLECALCIFEROL
     Dosage: TAKE ONE TABLET TWICE DAILY
     Dates: start: 20220125
  4. AMLODIPINE [Concomitant]
     Active Substance: AMLODIPINE BESYLATE
     Dosage: TAKE ONE DAILY FOR BLOOD PRESSURE
     Dates: start: 20220125
  5. ATORVASTATIN [Concomitant]
     Active Substance: ATORVASTATIN
     Dosage: TAKE ONE AT NIGHT
     Dates: start: 20220125
  6. COCODAMOL [Concomitant]
     Active Substance: ACETAMINOPHEN\CODEINE PHOSPHATE
     Dosage: TAKE 2 4 TIMES/DAY AS NEEDED, FOR PAIN
     Dates: start: 20220912
  7. DIGOXIN [Concomitant]
     Active Substance: DIGOXIN
     Dosage: TAKE ONE DAILY AS CARDIOLOGIST
     Dates: start: 20220125
  8. DUTASTERIDE [Concomitant]
     Active Substance: DUTASTERIDE
     Dosage: TAKE ONE DAILY
     Dates: start: 20220125
  9. FOLIC ACID [Concomitant]
     Active Substance: FOLIC ACID
     Dosage: TAKE ONE (5MG) WEEKLY, NOT ON SAME DAY AS METHO...
     Dates: start: 20220125
  10. FUROSEMIDE [Concomitant]
     Active Substance: FUROSEMIDE
     Dosage: TAKE TWO TABLETS  EACH MORNING OR AS PER HOSPIT...
     Dates: start: 20220125
  11. OMEPRAZOLE [Concomitant]
     Active Substance: OMEPRAZOLE
     Dosage: STOMACH PROTECTION, ONE DAILY
     Dates: start: 20220125
  12. SENNA LEAF [Concomitant]
     Active Substance: SENNA LEAF
     Dosage: TAKE 1 OR 2 AT NIGHT FOR CONSTIPATION
     Dates: start: 20220125

REACTIONS (4)
  - Musculoskeletal pain [Recovering/Resolving]
  - Arthralgia [Not Recovered/Not Resolved]
  - Lethargy [Not Recovered/Not Resolved]
  - Nausea [Not Recovered/Not Resolved]

NARRATIVE: CASE EVENT DATE: 20220822
